FAERS Safety Report 10191323 (Version 1)
Quarter: 2014Q2

REPORT INFORMATION
  Report Type: Spontaneous
  Country: GB (occurrence: None)
  Receive Date: 20140521
  Receipt Date: 20140521
  Transmission Date: 20141212
  Serious: Yes (Other)
  Sender: FDA-Public Use
  Company Number: AUR-APL-2014-05933

PATIENT
  Sex: Male

DRUGS (2)
  1. BISOPROLOL (BISOPROLOL) [Suspect]
     Indication: PRODUCT USED FOR UNKNOWN INDICATION
  2. IVABRADINE [Suspect]
     Indication: HEART RATE INCREASED
     Dosage: 10 MG (5 MG, 2 IN 1 D), UNKNOWN

REACTIONS (1)
  - Heart rate decreased [None]
